FAERS Safety Report 11853560 (Version 1)
Quarter: 2015Q4

REPORT INFORMATION
  Report Type: Spontaneous
  Country: US (occurrence: US)
  Receive Date: 20151219
  Receipt Date: 20151219
  Transmission Date: 20160305
  Serious: No
  Sender: FDA-Public Use
  Company Number: US-BAUSCH-BL-2015-018068

PATIENT
  Age: 8 Year
  Sex: Male
  Weight: 38 kg

DRUGS (1)
  1. XENAZINE [Suspect]
     Active Substance: TETRABENAZINE
     Indication: EPILEPSY
     Dates: start: 20130315, end: 20150716

REACTIONS (4)
  - Prescribed overdose [Unknown]
  - Off label use [Unknown]
  - Drug ineffective [Unknown]
  - Treatment noncompliance [Unknown]

NARRATIVE: CASE EVENT DATE: 20150716
